FAERS Safety Report 7505992-X (Version None)
Quarter: 2011Q2

REPORT INFORMATION
  Report Type: 
  Country: None (occurrence: None)
  Receive Date: 20110411
  Receipt Date: 20100304
  Transmission Date: 20111010
  Serious: Yes (Life-Threatening, Hospitalization, Other)
  Sender: FDA-Public Use
  Company Number: AE 2010-019

PATIENT
  Age: 61 Year
  Sex: Male
  Weight: 62.5964 kg

DRUGS (11)
  1. LIPITOR [Concomitant]
  2. MULTI-VITAMIN [Concomitant]
  3. COLACE [Concomitant]
  4. PROZAC [Concomitant]
  5. ZYPREXA [Concomitant]
  6. ATIVAN [Concomitant]
  7. FAZACLO ODT [Suspect]
     Indication: SCHIZOPHRENIA
     Dosage: 200MG-400MG DAILY PO
     Route: 048
     Dates: start: 20091117
  8. ARICEPT [Concomitant]
  9. BENADRYL [Concomitant]
  10. TRAZODONE HCL [Concomitant]
  11. HALDOL [Concomitant]

REACTIONS (1)
  - CONVULSION [None]
